FAERS Safety Report 26102536 (Version 1)
Quarter: 2025Q4

REPORT INFORMATION
  Report Type: Spontaneous
  Country: JP (occurrence: JP)
  Receive Date: 20251128
  Receipt Date: 20251128
  Transmission Date: 20260118
  Serious: Yes (Other)
  Sender: UCB
  Company Number: JP-MMM-Otsuka-3TKH6EYJ

PATIENT

DRUGS (1)
  1. NEUPRO [Suspect]
     Active Substance: ROTIGOTINE
     Indication: Supranuclear palsy
     Dosage: UNK

REACTIONS (3)
  - Hand fracture [Unknown]
  - Muscular weakness [Unknown]
  - Product use in unapproved indication [Unknown]
